FAERS Safety Report 20709154 (Version 1)
Quarter: 2022Q2

REPORT INFORMATION
  Report Type: Report from Study
  Country: US (occurrence: None)
  Receive Date: 20220414
  Receipt Date: 20220414
  Transmission Date: 20220720
  Serious: Yes (Death, Hospitalization, Other)
  Sender: FDA-Public Use
  Company Number: 2022A144020

PATIENT
  Age: 28681 Day
  Sex: Male

DRUGS (1)
  1. LOKELMA [Suspect]
     Active Substance: SODIUM ZIRCONIUM CYCLOSILICATE
     Indication: Blood potassium increased
     Route: 048

REACTIONS (4)
  - Leukaemia [Unknown]
  - COVID-19 [Fatal]
  - Fall [Fatal]
  - Renal failure [Unknown]

NARRATIVE: CASE EVENT DATE: 20220210
